FAERS Safety Report 12648648 (Version 3)
Quarter: 2017Q2

REPORT INFORMATION
  Report Type: Spontaneous
  Country: JP (occurrence: JP)
  Receive Date: 20160812
  Receipt Date: 20170508
  Transmission Date: 20170830
  Serious: Yes (Hospitalization)
  Sender: FDA-Public Use
  Company Number: JP-SANTEN-201600965

PATIENT

DRUGS (11)
  1. CRAVIT [Suspect]
     Active Substance: LEVOFLOXACIN
     Indication: OCULAR HYPERAEMIA
  2. FLUMETHOLON [Suspect]
     Active Substance: FLUOROMETHOLONE
     Indication: CONJUNCTIVITIS
     Dosage: UNK, QID, OU
     Route: 047
     Dates: start: 20160624, end: 20160701
  3. CRAVIT [Suspect]
     Active Substance: LEVOFLOXACIN
     Indication: CONJUNCTIVITIS CHLAMYDIAL
  4. FLUMETHOLON [Suspect]
     Active Substance: FLUOROMETHOLONE
     Indication: OCULAR HYPERAEMIA
  5. RIMATIL [Suspect]
     Active Substance: BUCILLAMINE
     Dosage: UNK
     Route: 048
     Dates: start: 2011, end: 20160710
  6. CRAVIT [Suspect]
     Active Substance: LEVOFLOXACIN
     Indication: CONJUNCTIVITIS
     Dosage: UNK, QID
     Route: 047
     Dates: start: 20160624, end: 20160709
  7. OMEPRAZOLE. [Suspect]
     Active Substance: OMEPRAZOLE
     Indication: INTERSTITIAL LUNG DISEASE
     Dosage: UNK, QD
     Route: 048
     Dates: start: 20160601, end: 20160710
  8. ENBREL [Suspect]
     Active Substance: ETANERCEPT
     Dosage: UNK
     Route: 058
     Dates: start: 2011, end: 20160710
  9. CELECOX [Suspect]
     Active Substance: CELECOXIB
     Dosage: UNK
     Route: 048
     Dates: start: 2011, end: 20160710
  10. PREDNISOLONE. [Suspect]
     Active Substance: PREDNISOLONE
     Dosage: UNK, BID
     Route: 048
     Dates: start: 20160622, end: 20160821
  11. BACTRAMIN [Suspect]
     Active Substance: SULFAMETHOXAZOLE\TRIMETHOPRIM
     Indication: INTERSTITIAL LUNG DISEASE
     Dosage: UNK UNK, QD
     Route: 048
     Dates: start: 20160601, end: 20160710

REACTIONS (2)
  - Impetigo [Recovering/Resolving]
  - Stevens-Johnson syndrome [Recovering/Resolving]

NARRATIVE: CASE EVENT DATE: 20160713
